FAERS Safety Report 5005731-0 (Version None)
Quarter: 2006Q2

REPORT INFORMATION
  Report Type: 
  Country: None (occurrence: None)
  Receive Date: 20060518
  Receipt Date: 20060322
  Transmission Date: 20061013
  Serious: Yes (Hospitalization)
  Sender: FDA-Public Use
  Company Number: 2006AP01442

PATIENT
  Age: 28245 Day
  Sex: Female
  Weight: 44.9 kg

DRUGS (7)
  1. TENORMIN [Suspect]
     Indication: HYPERTENSION
     Route: 048
     Dates: end: 20060318
  2. SOLANEX [Suspect]
     Indication: INSOMNIA
     Route: 048
     Dates: end: 20060318
  3. PERSANTIN-L [Concomitant]
     Indication: GLOMERULONEPHRITIS CHRONIC
     Route: 048
     Dates: end: 20060318
  4. KAYEXALATE [Concomitant]
     Indication: HYPERKALAEMIA
     Route: 048
     Dates: end: 20060318
  5. ALLOPURINOL [Concomitant]
     Indication: HYPERURICAEMIA
     Route: 048
     Dates: end: 20060318
  6. ADALAT [Concomitant]
     Indication: HYPERTENSION
     Route: 048
  7. LASIX [Concomitant]
     Indication: OEDEMA
     Route: 048

REACTIONS (12)
  - APATHY [None]
  - AZOTAEMIA [None]
  - BEDRIDDEN [None]
  - DECREASED ACTIVITY [None]
  - DEPRESSED LEVEL OF CONSCIOUSNESS [None]
  - DRUG LEVEL FLUCTUATING [None]
  - HAEMODIALYSIS [None]
  - MUSCULAR WEAKNESS [None]
  - OEDEMA [None]
  - ORAL INTAKE REDUCED [None]
  - SOMNOLENCE [None]
  - SPEECH DISORDER [None]
